FAERS Safety Report 6659514-6 (Version None)
Quarter: 2010Q1

REPORT INFORMATION
  Report Type: 
  Country: None (occurrence: None)
  Receive Date: 20100330
  Receipt Date: 20100317
  Transmission Date: 20100710
  Serious: Yes (Hospitalization, Other)
  Sender: FDA-Public Use
  Company Number: FR-ELI_LILLY_AND_COMPANY-FR201003005413

PATIENT
  Age: 65 Year
  Sex: Male

DRUGS (2)
  1. GEMZAR [Suspect]
     Indication: NON-SMALL CELL LUNG CANCER
     Dosage: 1250 MG/M2, OTHER (DAY ONE AND DAY EIGHT EVERY THREE WEEKS)
     Route: 042
  2. CISPLATIN [Concomitant]
     Indication: NON-SMALL CELL LUNG CANCER
     Dosage: 80 MG/M2, OTHER (DAY ONE EVERY THREE WEEKS)
     Route: 042

REACTIONS (1)
  - AORTIC THROMBOSIS [None]
